FAERS Safety Report 8962447 (Version 1)
Quarter: 2012Q4

REPORT INFORMATION
  Report Type: 
  Country: IT (occurrence: IT)
  Receive Date: 20121213
  Receipt Date: 20121213
  Transmission Date: 20130627
  Serious: Yes (Other)
  Sender: FDA-Public Use
  Company Number: IT-MYLANLABS-2012S1024960

PATIENT
  Age: 64 Year
  Sex: Female

DRUGS (4)
  1. ARACYTINE [Suspect]
     Indication: NON-HODGKIN^S LYMPHOMA
     Route: 065
  2. BLEOMYCIN [Suspect]
     Indication: NON-HODGKIN^S LYMPHOMA
     Route: 065
  3. VINCRISTINE [Suspect]
     Indication: NON-HODGKIN^S LYMPHOMA
     Route: 065
  4. METHOTREXATE [Suspect]
     Indication: NON-HODGKIN^S LYMPHOMA
     Route: 065

REACTIONS (2)
  - Arthritis bacterial [Recovered/Resolved]
  - Immunosuppression [Unknown]
